FAERS Safety Report 24012772 (Version 1)
Quarter: 2024Q2

REPORT INFORMATION
  Report Type: Spontaneous
  Country: US (occurrence: US)
  Receive Date: 20240626
  Receipt Date: 20240626
  Transmission Date: 20240715
  Serious: Yes (Other)
  Sender: FDA-Public Use
  Company Number: US-BELUSA-2024BELLIT0072

PATIENT

DRUGS (1)
  1. ENOXAPARIN SODIUM [Suspect]
     Active Substance: ENOXAPARIN SODIUM
     Indication: Thrombosis prophylaxis
     Dosage: DOUBLED THE STANDARD DOSE 40 MG DAILY TO 40 MG TWICE A DAY
     Route: 065

REACTIONS (1)
  - Drug ineffective [Unknown]
